FAERS Safety Report 4326386-4 (Version None)
Quarter: 2004Q1

REPORT INFORMATION
  Report Type: 
  Country: None (occurrence: None)
  Receive Date: 20040330
  Receipt Date: 20040322
  Transmission Date: 20041129
  Serious: Yes (Hospitalization)
  Sender: FDA-Public Use
  Company Number: PHNU2004DE01327

PATIENT
  Age: 60 Year
  Sex: Male

DRUGS (3)
  1. VOLTAREN [Suspect]
     Dosage: UNK, PRN
     Route: 048
  2. SELECTOMYCIN [Suspect]
     Indication: INFECTION
  3. DOXY-WOLFF [Suspect]
     Indication: INFECTION

REACTIONS (2)
  - DRUG INTERACTION [None]
  - INFECTION [None]
